FAERS Safety Report 13429918 (Version 2)
Quarter: 2017Q2

REPORT INFORMATION
  Report Type: Spontaneous
  Country: HU (occurrence: HU)
  Receive Date: 20170412
  Receipt Date: 20170524
  Transmission Date: 20170830
  Serious: Yes (Other)
  Sender: FDA-Public Use
  Company Number: HU-ROCHE-1919157

PATIENT

DRUGS (2)
  1. SODIUM HEPARIN [Concomitant]
     Active Substance: HEPARIN SODIUM
     Indication: PELVIC VENOUS THROMBOSIS
     Dosage: A BOLUS OF 5000 IU AT A RATE OF 500-1000 IU/H USING AN INFUSION PUMP, ADMINISTERED IN A PERIPHERAL V
     Route: 042
  2. ACTILYSE [Suspect]
     Active Substance: ALTEPLASE
     Indication: PELVIC VENOUS THROMBOSIS
     Dosage: A BOLUS OF 20 MG WAS ADMINISTERED AS INITIAL THERAPY, AT A RATE OF 2-3 MG/H USING AN INFUSION PUMP
     Route: 050

REACTIONS (3)
  - Catheter site haematoma [Unknown]
  - Acute kidney injury [Recovered/Resolved]
  - Off label use [Unknown]
